FAERS Safety Report 15122900 (Version 7)
Quarter: 2020Q3

REPORT INFORMATION
  Report Type: Report from Study
  Country: US (occurrence: US)
  Receive Date: 20180709
  Receipt Date: 20200707
  Transmission Date: 20201102
  Serious: Yes (Hospitalization)
  Sender: FDA-Public Use
  Company Number: US-ACTELION-A-US2018-174943

PATIENT
  Age: 60 Year
  Sex: Male
  Weight: 77.1 kg

DRUGS (3)
  1. OPSUMIT [Suspect]
     Active Substance: MACITENTAN
     Indication: PULMONARY HYPERTENSION
     Dosage: 10 MG, QD
     Route: 048
     Dates: start: 20160601
  2. ORENITRAM [Concomitant]
     Active Substance: TREPROSTINIL
     Dosage: 0.25 MG, TID
  3. SILDENAFIL CITRATE. [Concomitant]
     Active Substance: SILDENAFIL CITRATE

REACTIONS (13)
  - Malaise [Recovered/Resolved]
  - Bone pain [Unknown]
  - Heart disease congenital [Unknown]
  - Pulmonary oedema [Unknown]
  - Atrial fibrillation [Unknown]
  - Pneumonia [Recovered/Resolved]
  - Dyspnoea [Unknown]
  - Hypoxia [Recovered/Resolved]
  - Pain in extremity [Unknown]
  - Septic shock [Unknown]
  - Palpitations [Unknown]
  - Dyspnoea exertional [Unknown]
  - Syncope [Unknown]

NARRATIVE: CASE EVENT DATE: 20180627
